FAERS Safety Report 5783993-X (Version None)
Quarter: 2008Q2

REPORT INFORMATION
  Report Type: 
  Country: None (occurrence: None)
  Receive Date: 20080605
  Receipt Date: 20080328
  Transmission Date: 20081010
  Serious: No
  Sender: FDA-Public Use
  Company Number: A0717969A

PATIENT
  Age: 27 Year
  Sex: Female
  Weight: 57 kg

DRUGS (2)
  1. ALLI [Suspect]
     Dates: start: 20080325
  2. YASMIN [Concomitant]

REACTIONS (2)
  - METRORRHAGIA [None]
  - MUSCLE SPASMS [None]
